FAERS Safety Report 15807806 (Version 8)
Quarter: 2022Q3

REPORT INFORMATION
  Report Type: Spontaneous
  Country: US (occurrence: US)
  Receive Date: 20190110
  Receipt Date: 20220930
  Transmission Date: 20221027
  Serious: Yes (Other)
  Sender: FDA-Public Use
  Company Number: US-PFIZER INC-2019012051

PATIENT
  Age: 53 Year
  Sex: Female

DRUGS (1)
  1. XELJANZ XR [Suspect]
     Active Substance: TOFACITINIB CITRATE
     Dosage: 11 MG, DAILY

REACTIONS (6)
  - Rheumatoid arthritis [Unknown]
  - Rhinorrhoea [Unknown]
  - Sensitivity to weather change [Unknown]
  - Pain [Unknown]
  - Mobility decreased [Unknown]
  - Sinusitis [Unknown]
